FAERS Safety Report 8619485-X (Version None)
Quarter: 2012Q3

REPORT INFORMATION
  Report Type: 
  Country: None (occurrence: None)
  Receive Date: 20120824
  Receipt Date: 20120821
  Transmission Date: 20120928
  Serious: Yes (Life-Threatening, Hospitalization, Other)
  Sender: FDA-Public Use
  Company Number: JP-PFIZER INC-2012029443

PATIENT
  Age: 65 Year
  Sex: Female
  Weight: 57 kg

DRUGS (11)
  1. NEORAL [Concomitant]
     Dosage: 75 MG, 2X/DAY
     Dates: start: 20111108, end: 20120110
  2. BASEN [Concomitant]
     Dosage: 0.3 MG, 3X/DAY
     Route: 048
     Dates: start: 20111110, end: 20120523
  3. SULFAMETHOXAZOLE AND TRIMETHOPRIM [Concomitant]
     Dosage: 1 DF, 1X/DAY
     Route: 048
     Dates: start: 20111019
  4. PREDNISOLONE [Concomitant]
     Dosage: 17.5 MG, 2X/DAY
     Route: 048
     Dates: start: 20111022
  5. BONALEN(ALENDRONATE SODIUM) [Concomitant]
     Dosage: 35 MG, WEEKLY
     Dates: start: 20111028, end: 20120522
  6. FUNGIZONE [Concomitant]
     Dosage: 2 MG, 2X/DAY
     Dates: start: 20111027, end: 20120603
  7. VFEND [Suspect]
     Indication: BRONCHOPULMONARY ASPERGILLOSIS
     Dosage: 200 MG, 2X/DAY
     Route: 048
     Dates: start: 20111222
  8. LANSOPRAZOLE [Concomitant]
     Dosage: 15 MG, 1X/DAY
     Route: 048
     Dates: start: 20111027
  9. CANDESARTAN CILEXETIL [Concomitant]
     Dosage: 4 MG, 1X/DAY
     Dates: start: 20111115, end: 20120215
  10. LIPITOR [Interacting]
     Dosage: 10 MG, 1X/DAY
     Route: 048
     Dates: start: 20111019, end: 20120215
  11. METFORMIN HCL [Concomitant]
     Dosage: 250 MG, 3X/DAY
     Route: 048
     Dates: start: 20111110, end: 20120216

REACTIONS (4)
  - DRUG INTERACTION [None]
  - BRONCHOPULMONARY ASPERGILLOSIS [None]
  - HYPERTRIGLYCERIDAEMIA [None]
  - ANAEMIA MACROCYTIC [None]
